FAERS Safety Report 20362634 (Version 2)
Quarter: 2022Q1

REPORT INFORMATION
  Report Type: Spontaneous
  Country: JP (occurrence: JP)
  Receive Date: 20220121
  Receipt Date: 20220128
  Transmission Date: 20220423
  Serious: Yes (Life-Threatening, Other)
  Sender: FDA-Public Use
  Company Number: JP-MSD-M2022-00750

PATIENT
  Sex: Female

DRUGS (5)
  1. KEYTRUDA [Suspect]
     Active Substance: PEMBROLIZUMAB
     Indication: Triple negative breast cancer
     Dosage: 200 MILLIGRAM, Q3W
     Route: 041
     Dates: start: 202112
  2. CARBOPLATIN [Suspect]
     Active Substance: CARBOPLATIN
     Indication: Triple negative breast cancer
     Dosage: AUC2
     Route: 041
     Dates: start: 202112, end: 202112
  3. CARBOPLATIN [Suspect]
     Active Substance: CARBOPLATIN
     Dosage: AUC1.5
     Route: 041
     Dates: start: 20220120
  4. GEMCITABINE HYDROCHLORIDE [Suspect]
     Active Substance: GEMCITABINE HYDROCHLORIDE
     Indication: Triple negative breast cancer
     Dosage: 1000 MILLIGRAM
     Route: 041
     Dates: start: 202112, end: 202112
  5. GEMCITABINE HYDROCHLORIDE [Suspect]
     Active Substance: GEMCITABINE HYDROCHLORIDE
     Dosage: 800 MILLIGRAM
     Route: 041
     Dates: start: 20220120

REACTIONS (3)
  - Neutrophil count decreased [Recovering/Resolving]
  - Febrile neutropenia [Recovering/Resolving]
  - Pyrexia [Recovering/Resolving]

NARRATIVE: CASE EVENT DATE: 20220106
